FAERS Safety Report 8355394-1 (Version None)
Quarter: 2012Q2

REPORT INFORMATION
  Report Type: 
  Country: None (occurrence: None)
  Receive Date: 20120511
  Receipt Date: 20120501
  Transmission Date: 20120825
  Serious: Yes (Other)
  Sender: FDA-Public Use
  Company Number: US-ROCHE-1045242

PATIENT
  Sex: Male
  Weight: 107.14 kg

DRUGS (3)
  1. RIBAVIRIN [Suspect]
     Indication: HEPATITIS C
  2. PEGASYS [Suspect]
     Indication: HEPATITIS C
  3. TELAPREVIR [Suspect]
     Indication: HEPATITIS C

REACTIONS (9)
  - BRAIN HYPOXIA [None]
  - APHASIA [None]
  - EXPRESSIVE LANGUAGE DISORDER [None]
  - TUNNEL VISION [None]
  - HAEMOGLOBIN DECREASED [None]
  - INFLUENZA LIKE ILLNESS [None]
  - UNEVALUABLE EVENT [None]
  - ANORECTAL DISORDER [None]
  - COGNITIVE DISORDER [None]
